FAERS Safety Report 5194575-5 (Version None)
Quarter: 2006Q4

REPORT INFORMATION
  Report Type: 
  Country: None (occurrence: None)
  Receive Date: 20061229
  Receipt Date: 20060508
  Transmission Date: 20070319
  Serious: Yes (Disabling, Other)
  Sender: FDA-Public Use
  Company Number: US-SP-2006-01061

PATIENT
  Age: 44 Year
  Sex: Female

DRUGS (5)
  1. DECAVAC [Suspect]
     Indication: IMMUNISATION
     Route: 030
     Dates: start: 20050830
  2. DECAVAC [Suspect]
     Route: 030
     Dates: start: 20050830
  3. TUBERSOL [Suspect]
     Indication: IMMUNISATION
     Route: 023
     Dates: start: 20050830
  4. TUBERSOL [Suspect]
     Route: 023
     Dates: start: 20050830
  5. ENGERIX-B [Suspect]
     Indication: IMMUNISATION
     Route: 030
     Dates: start: 20050830

REACTIONS (17)
  - COMPLEX REGIONAL PAIN SYNDROME [None]
  - CONDITION AGGRAVATED [None]
  - FATIGUE [None]
  - HEADACHE [None]
  - HEPATIC FUNCTION ABNORMAL [None]
  - HYPERACUSIS [None]
  - INJECTION SITE IRRITATION [None]
  - INJECTION SITE PAIN [None]
  - INJECTION SITE RASH [None]
  - MOBILITY DECREASED [None]
  - MUSCULAR WEAKNESS [None]
  - NAUSEA [None]
  - PAIN [None]
  - PHOTOPHOBIA [None]
  - SWELLING FACE [None]
  - TRIGEMINAL NEURALGIA [None]
  - WEIGHT DECREASED [None]
